FAERS Safety Report 9128567 (Version 1)
Quarter: 2013Q1

REPORT INFORMATION
  Report Type: Report from Study
  Country: CZ (occurrence: CZ)
  Receive Date: 20130125
  Receipt Date: 20130125
  Transmission Date: 20140127
  Serious: Yes (Other)
  Sender: FDA-Public Use
  Company Number: CZ-TEVA-382095ISR

PATIENT
  Age: 32 Year
  Sex: Female

DRUGS (2)
  1. LEVONORGESTREL [Suspect]
     Indication: POST COITAL CONTRACEPTION
     Route: 048
  2. LEVONORGESTREL [Suspect]
     Route: 048
     Dates: start: 20111219, end: 20111219

REACTIONS (4)
  - Drug ineffective [Recovered/Resolved]
  - Abortion induced [Recovered/Resolved]
  - Exposure during pregnancy [Unknown]
  - Headache [Recovered/Resolved]
